FAERS Safety Report 13439052 (Version 2)
Quarter: 2017Q2

REPORT INFORMATION
  Report Type: Spontaneous
  Country: US (occurrence: US)
  Receive Date: 20170412
  Receipt Date: 20170519
  Transmission Date: 20170830
  Serious: Yes (Death, Hospitalization, Other)
  Sender: FDA-Public Use
  Company Number: US-BAUSCH-BL-2017-008934

PATIENT
  Sex: Male

DRUGS (3)
  1. PROVENGE [Suspect]
     Active Substance: SIPULEUCEL-T
     Indication: PROSTATE CANCER
     Route: 042
     Dates: start: 20130726, end: 20130726
  2. PROVENGE [Suspect]
     Active Substance: SIPULEUCEL-T
     Route: 042
     Dates: start: 20130823, end: 20130823
  3. PROVENGE [Suspect]
     Active Substance: SIPULEUCEL-T
     Route: 042
     Dates: start: 20130809, end: 20130809

REACTIONS (6)
  - Neuroendocrine carcinoma metastatic [Unknown]
  - Death [Fatal]
  - Generalised oedema [Unknown]
  - Failure to thrive [Unknown]
  - Deep vein thrombosis [Unknown]
  - Hypovolaemic shock [Unknown]
